FAERS Safety Report 6512464-8 (Version None)
Quarter: 2009Q4

REPORT INFORMATION
  Report Type: 
  Country: None (occurrence: None)
  Receive Date: 20091222
  Receipt Date: 20091214
  Transmission Date: 20100525
  Serious: Yes (Hospitalization)
  Sender: FDA-Public Use
  Company Number: US-WATSON-2009-09538

PATIENT
  Sex: Female
  Weight: 85.261 kg

DRUGS (13)
  1. FENTANYL-75 [Suspect]
     Indication: BACK PAIN
     Dosage: 75 MCG, SINGLE
     Route: 062
     Dates: start: 20090708, end: 20090710
  2. METOPROLOL TARTRATE [Concomitant]
     Indication: HYPERTENSION
     Dosage: 1T BID
     Route: 048
  3. AMARYL [Concomitant]
     Indication: DIABETES MELLITUS
     Dosage: 1T, DAILY
     Route: 048
  4. METFORMIN HCL [Concomitant]
     Indication: DIABETES MELLITUS
     Dosage: 500 MG, BID
     Route: 048
  5. PROZAC [Concomitant]
     Indication: DEPRESSION
     Dosage: 1C, DAILY
     Route: 048
  6. OMEPRAZOLE [Concomitant]
     Indication: DRUG USE FOR UNKNOWN INDICATION
     Dosage: 20 MG, DAILY
     Route: 048
  7. CASANTHRANOL W/DOCUSATE SODIUM [Concomitant]
     Indication: DRUG USE FOR UNKNOWN INDICATION
     Dosage: 1 TABLET, DAILY
     Route: 048
  8. NORCO [Concomitant]
     Indication: DRUG USE FOR UNKNOWN INDICATION
     Dosage: 1-2  TABLETS, Q6H
     Route: 048
  9. PREGABALIN [Concomitant]
     Indication: DRUG USE FOR UNKNOWN INDICATION
     Dosage: 50MG BID, 100MG QHS
     Route: 048
  10. PREGABALIN [Concomitant]
     Dosage: 100 MG, QHS
     Route: 048
  11. METHOCARBAMOL [Concomitant]
     Indication: DRUG USE FOR UNKNOWN INDICATION
     Dosage: 750 MG, Q8H
     Route: 048
  12. LISINOPRIL AND HYDROCHLOROTHIAZIDE [Concomitant]
     Indication: DRUG USE FOR UNKNOWN INDICATION
     Dosage: 1 (20/25MG) TABLET, DAILY
     Route: 048
  13. CALCIUM CARBONATE W/VITAMIN D      /00944201/ [Concomitant]
     Indication: DRUG USE FOR UNKNOWN INDICATION
     Dosage: 2 TABLETS, BID
     Route: 048

REACTIONS (22)
  - ACCIDENTAL OVERDOSE [None]
  - ADRENAL DISORDER [None]
  - AMNESIA [None]
  - ASTHENIA [None]
  - BLOOD CULTURE POSITIVE [None]
  - CONFUSIONAL STATE [None]
  - COUGH [None]
  - DEPRESSED LEVEL OF CONSCIOUSNESS [None]
  - ENCEPHALOPATHY [None]
  - FATIGUE [None]
  - HALLUCINATION, VISUAL [None]
  - HYPOTENSION [None]
  - KIDNEY INFECTION [None]
  - MALAISE [None]
  - MENTAL STATUS CHANGES [None]
  - NERVE INJURY [None]
  - PYREXIA [None]
  - RENAL FAILURE ACUTE [None]
  - RESPIRATORY FAILURE [None]
  - SPEECH DISORDER [None]
  - URINARY INCONTINENCE [None]
  - URINARY TRACT INFECTION [None]
